FAERS Safety Report 12411936 (Version 2)
Quarter: 2016Q2

REPORT INFORMATION
  Report Type: Spontaneous
  Country: BR (occurrence: BR)
  Receive Date: 20160527
  Receipt Date: 20160531
  Transmission Date: 20160815
  Serious: Yes (Death, Hospitalization, Other)
  Sender: FDA-Public Use
  Company Number: BR-PFIZER INC-2016159983

PATIENT
  Age: 71 Year
  Sex: Female
  Weight: 80 kg

DRUGS (5)
  1. HIDANTAL [Concomitant]
     Active Substance: PHENYTOIN SODIUM
     Indication: SEIZURE
     Dosage: 1 TABLET OF STRENGTH 100 MG, IN THE MORNING AND AT NIGHT
  2. SUTENT [Suspect]
     Active Substance: SUNITINIB MALATE
     Indication: METASTATIC RENAL CELL CARCINOMA
     Dosage: 50 MG, 1 TABLET PER DAY, CYCLE 4 X 2
     Route: 048
     Dates: start: 20150924, end: 201604
  3. NIFEDINE [Concomitant]
     Indication: HYPERTENSION
     Dosage: STRENGTH 500 MG, AT 1 TABLET IN THE MORNING AND AT NIGHT
  4. METFORMIN [Concomitant]
     Active Substance: METFORMIN HYDROCHLORIDE
     Indication: DIABETES MELLITUS
     Dosage: STRENGTH 800 MG, AT 1 TABLET IN THE MORNING AND AT NIGHT,
  5. METHYLDOPA. [Concomitant]
     Active Substance: METHYLDOPA

REACTIONS (15)
  - Skin fissures [Not Recovered/Not Resolved]
  - Hyperpyrexia [Fatal]
  - Cardiac disorder [Not Recovered/Not Resolved]
  - Skin discolouration [Not Recovered/Not Resolved]
  - Skin atrophy [Not Recovered/Not Resolved]
  - Wound [Not Recovered/Not Resolved]
  - Urinary tract infection [Fatal]
  - Pulmonary oedema [Not Recovered/Not Resolved]
  - Platelet count decreased [Not Recovered/Not Resolved]
  - Haematoma [Not Recovered/Not Resolved]
  - Condition aggravated [Not Recovered/Not Resolved]
  - Cardiac arrest [Fatal]
  - Hyperaesthesia [Not Recovered/Not Resolved]
  - Condition aggravated [Not Recovered/Not Resolved]
  - Swelling [Not Recovered/Not Resolved]

NARRATIVE: CASE EVENT DATE: 201511
